FAERS Safety Report 5028579-X (Version None)
Quarter: 2006Q2

REPORT INFORMATION
  Report Type: 
  Country: None (occurrence: None)
  Receive Date: 20060616
  Receipt Date: 20060616
  Transmission Date: 20061013
  Serious: Yes (Death)
  Sender: FDA-Public Use
  Company Number: None

PATIENT
  Sex: Male
  Weight: 84.6 kg

DRUGS (1)
  1. VINORELBINE [Suspect]
     Indication: PANCREATIC CARCINOMA
     Dosage: 30 MG M2= 63 MG WEEKLY IVP
     Route: 042
     Dates: start: 20060516

REACTIONS (1)
  - DISEASE PROGRESSION [None]
